FAERS Safety Report 7369764-1 (Version None)
Quarter: 2011Q1

REPORT INFORMATION
  Report Type: 
  Country: None (occurrence: None)
  Receive Date: 20110323
  Receipt Date: 20110309
  Transmission Date: 20110831
  Serious: Yes (Hospitalization, Disabling, Other)
  Sender: FDA-Public Use
  Company Number: PT-ASTRAZENECA-2011SE10835

PATIENT
  Age: 31 Year
  Sex: Female
  Weight: 52 kg

DRUGS (6)
  1. YAZ [Concomitant]
  2. EMLA [Suspect]
     Indication: LOCAL ANAESTHESIA
     Route: 061
     Dates: start: 20100601
  3. PAROXETINE HCL [Concomitant]
     Route: 048
  4. ORAL BIRTH CONTROL [Concomitant]
     Route: 048
  5. PLAQUINOL [Interacting]
     Indication: SYSTEMIC LUPUS ERYTHEMATOSUS
     Route: 048
  6. ROSILAN [Concomitant]
     Indication: SYSTEMIC LUPUS ERYTHEMATOSUS
     Route: 048

REACTIONS (2)
  - DRUG INTERACTION [None]
  - CEREBROVASCULAR ACCIDENT [None]
